FAERS Safety Report 6499966-8 (Version None)
Quarter: 2009Q4

REPORT INFORMATION
  Report Type: 
  Country: None (occurrence: None)
  Receive Date: 20091216
  Receipt Date: 20091208
  Transmission Date: 20100525
  Serious: Yes (Hospitalization)
  Sender: FDA-Public Use
  Company Number: US-BIOGENIDEC-2009BI038097

PATIENT
  Age: 56 Year
  Sex: Male

DRUGS (16)
  1. AVONEX [Suspect]
     Indication: MULTIPLE SCLEROSIS
     Route: 030
     Dates: start: 20050101, end: 20090801
  2. ALBUTEROL [Concomitant]
  3. ENOXAPARIN SODIUM [Concomitant]
  4. NITROGLYCERIN [Concomitant]
  5. PROTONIX [Concomitant]
     Route: 048
  6. ACETAMINOPHEN [Concomitant]
  7. HYDDROCODONE [Concomitant]
  8. BISACODYL [Concomitant]
  9. CALCIUM [Concomitant]
  10. DOCUSATE [Concomitant]
  11. DILAUDID [Concomitant]
  12. MULTI-VITAMIN [Concomitant]
     Route: 048
  13. ARTIFICIAL TEARS [Concomitant]
     Indication: DRY EYE
  14. LOPRESSOR [Concomitant]
     Route: 048
  15. COLACE [Concomitant]
     Route: 048
  16. ROXANOL [Concomitant]
     Indication: PAIN
     Route: 048

REACTIONS (11)
  - ACUTE RESPIRATORY FAILURE [None]
  - CALCULUS URINARY [None]
  - DECUBITUS ULCER [None]
  - ESCHERICHIA SEPSIS [None]
  - KIDNEY INFECTION [None]
  - MULTIPLE SCLEROSIS RELAPSE [None]
  - NEPHROLITHIASIS [None]
  - OEDEMA PERIPHERAL [None]
  - PNEUMONIA [None]
  - RENAL FAILURE ACUTE [None]
  - SYSTEMIC INFLAMMATORY RESPONSE SYNDROME [None]
